FAERS Safety Report 13256980 (Version 1)
Quarter: 2017Q1

REPORT INFORMATION
  Report Type: Report from Study
  Country: BR (occurrence: BR)
  Receive Date: 20170221
  Receipt Date: 20170221
  Transmission Date: 20170428
  Serious: Yes (Other)
  Sender: FDA-Public Use
  Company Number: PHHY2017BR026249

PATIENT
  Sex: Female

DRUGS (1)
  1. EXFORGE HCT [Suspect]
     Active Substance: AMLODIPINE BESYLATE\HYDROCHLOROTHIAZIDE\VALSARTAN
     Indication: PRODUCT USED FOR UNKNOWN INDICATION
     Dosage: 1 DF, QD (10MG AMLODIPINE/25MG HYDROCHLOROTHIAZIDE/320MG VALSARTAN)
     Route: 048

REACTIONS (2)
  - Cerebrovascular accident [Unknown]
  - Monoplegia [Not Recovered/Not Resolved]
